FAERS Safety Report 4374579-2 (Version None)
Quarter: 2004Q2

REPORT INFORMATION
  Report Type: 
  Country: None (occurrence: None)
  Receive Date: 20040604
  Receipt Date: 20040526
  Transmission Date: 20050107
  Serious: Yes (Disabling)
  Sender: FDA-Public Use
  Company Number: 2004031217

PATIENT
  Sex: Female

DRUGS (1)
  1. LIPITOR [Suspect]
     Indication: BLOOD CHOLESTEROL INCREASED

REACTIONS (5)
  - DIFFICULTY IN WALKING [None]
  - MUSCLE ENZYME INCREASED [None]
  - PAIN [None]
  - SWELLING [None]
  - TREATMENT NONCOMPLIANCE [None]
